FAERS Safety Report 6412631-8 (Version None)
Quarter: 2009Q4

REPORT INFORMATION
  Report Type: 
  Country: None (occurrence: None)
  Receive Date: 20091023
  Receipt Date: 20091014
  Transmission Date: 20100525
  Serious: Yes (Other)
  Sender: FDA-Public Use
  Company Number: PHHY2009BR44394

PATIENT
  Age: 14 Year
  Sex: Female

DRUGS (2)
  1. RITALIN [Suspect]
     Indication: ATTENTION DEFICIT/HYPERACTIVITY DISORDER
     Dosage: 10 MG1 TABLET DAILY
     Route: 048
  2. RITALIN LA [Suspect]
     Dosage: 30 MG 1 CAPSULE DAILY
     Route: 048
     Dates: start: 20091003

REACTIONS (7)
  - DRY MOUTH [None]
  - DYSKINESIA [None]
  - FEELING OF BODY TEMPERATURE CHANGE [None]
  - HEADACHE [None]
  - HYPOAESTHESIA ORAL [None]
  - ORAL DISCOMFORT [None]
  - VASODILATATION [None]
